FAERS Safety Report 25512957 (Version 2)
Quarter: 2025Q3

REPORT INFORMATION
  Report Type: Spontaneous
  Country: CN (occurrence: CN)
  Receive Date: 20250703
  Receipt Date: 20250723
  Transmission Date: 20251020
  Serious: Yes (Hospitalization, Other)
  Sender: ELI LILLY AND COMPANY
  Company Number: CN-ELI_LILLY_AND_COMPANY-CN202506024326

PATIENT
  Age: 18 Year
  Sex: Male

DRUGS (6)
  1. MOUNJARO [Suspect]
     Active Substance: TIRZEPATIDE
     Indication: Type 2 diabetes mellitus
     Dosage: 2.5 MG, WEEKLY (1/W)
     Route: 058
     Dates: start: 202502
  2. MOUNJARO [Suspect]
     Active Substance: TIRZEPATIDE
     Indication: Obesity
     Dosage: 5 MG, WEEKLY (1/W)
     Route: 058
     Dates: end: 20250620
  3. BENZBROMARONE [Concomitant]
     Active Substance: BENZBROMARONE
     Indication: Product used for unknown indication
     Route: 065
  4. FENOFIBRATE [Concomitant]
     Active Substance: FENOFIBRATE
     Indication: Product used for unknown indication
     Route: 065
  5. CALCIUM GLUCONATE AND VITAMIN D2 [Concomitant]
     Indication: Product used for unknown indication
     Route: 065
  6. XUE ZHI KANG [Concomitant]
     Indication: Product used for unknown indication
     Route: 065

REACTIONS (10)
  - Gastrointestinal erosion [Recovered/Resolved]
  - Chronic gastritis [Recovered/Resolved]
  - Small intestine polyp [Recovered/Resolved]
  - Gastrointestinal submucosal tumour [Unknown]
  - Terminal ileitis [Unknown]
  - Right ventricular enlargement [Unknown]
  - Hepatic steatosis [Unknown]
  - Prostatic cyst [Unknown]
  - Lymphadenopathy [Unknown]
  - Pelvic fluid collection [Unknown]
